FAERS Safety Report 23092675 (Version 1)
Quarter: 2023Q4

REPORT INFORMATION
  Report Type: Spontaneous
  Country: FR (occurrence: FR)
  Receive Date: 20231021
  Receipt Date: 20231021
  Transmission Date: 20240110
  Serious: Yes (Hospitalization)
  Sender: FDA-Public Use
  Company Number: None

PATIENT
  Age: 54 Year
  Sex: Female

DRUGS (7)
  1. CARBOPLATIN [Suspect]
     Active Substance: CARBOPLATIN
     Indication: Bronchial carcinoma
     Dosage: C1 DOSE UNK
     Route: 065
     Dates: start: 20230712
  2. CARBOPLATIN [Suspect]
     Active Substance: CARBOPLATIN
     Dosage: C2 DOSE UNK
     Route: 065
     Dates: start: 20230809
  3. EMEND [Concomitant]
     Active Substance: APREPITANT
     Indication: Product used for unknown indication
  4. POLARAMINE [Concomitant]
     Active Substance: DEXCHLORPHENIRAMINE MALEATE
     Indication: Product used for unknown indication
  5. CETIRIZINE (HYDROCHLORIDE) [Concomitant]
     Indication: Product used for unknown indication
     Dosage: CETIRIZINE (DICHLORHYDRATE DE)
  6. NAVELBINE [Concomitant]
     Active Substance: VINORELBINE TARTRATE
     Indication: Product used for unknown indication
  7. ONDANSETRON [Concomitant]
     Active Substance: ONDANSETRON
     Indication: Product used for unknown indication

REACTIONS (1)
  - Toxic skin eruption [Recovered/Resolved]

NARRATIVE: CASE EVENT DATE: 20230713
